FAERS Safety Report 12721595 (Version 1)
Quarter: 2016Q3

REPORT INFORMATION
  Report Type: Other
  Country: US (occurrence: US)
  Receive Date: 20160907
  Receipt Date: 20160907
  Transmission Date: 20161109
  Serious: No
  Sender: FDA-Public Use
  Company Number: US-COL_20781_2015

PATIENT
  Sex: Female

DRUGS (1)
  1. COLGATE TOTAL FRESH MINT STRIPE [Suspect]
     Active Substance: SODIUM FLUORIDE\TRICLOSAN
     Indication: PRODUCT USED FOR UNKNOWN INDICATION
     Dosage: NI/ NI/
     Route: 048

REACTIONS (2)
  - Stomatitis [Unknown]
  - Rash [Unknown]
